FAERS Safety Report 22921462 (Version 3)
Quarter: 2024Q3

REPORT INFORMATION
  Report Type: Spontaneous
  Country: US (occurrence: US)
  Receive Date: 20230908
  Receipt Date: 20240906
  Transmission Date: 20241016
  Serious: Yes (Other)
  Sender: DOMPE FARMACEUTICI
  Company Number: US-FARMAPROD-202306-1886

PATIENT
  Age: 73 Year
  Sex: Female
  Weight: 55.57 kg

DRUGS (68)
  1. OXERVATE [Suspect]
     Active Substance: CENEGERMIN-BKBJ
     Indication: Neurotrophic keratopathy
     Route: 047
     Dates: start: 20230616, end: 20230807
  2. OXERVATE [Suspect]
     Active Substance: CENEGERMIN-BKBJ
     Route: 047
     Dates: start: 20231023, end: 20231218
  3. OXERVATE [Suspect]
     Active Substance: CENEGERMIN-BKBJ
     Route: 047
     Dates: start: 20240513
  4. OXERVATE [Suspect]
     Active Substance: CENEGERMIN-BKBJ
  5. OXERVATE [Suspect]
     Active Substance: CENEGERMIN-BKBJ
  6. OXERVATE [Suspect]
     Active Substance: CENEGERMIN-BKBJ
  7. OXERVATE [Suspect]
     Active Substance: CENEGERMIN-BKBJ
  8. OXERVATE [Suspect]
     Active Substance: CENEGERMIN-BKBJ
  9. OXERVATE [Suspect]
     Active Substance: CENEGERMIN-BKBJ
  10. OXERVATE [Suspect]
     Active Substance: CENEGERMIN-BKBJ
  11. OXERVATE [Suspect]
     Active Substance: CENEGERMIN-BKBJ
  12. OXERVATE [Suspect]
     Active Substance: CENEGERMIN-BKBJ
  13. ZIOPTAN [Concomitant]
     Active Substance: TAFLUPROST
  14. ZIOPTAN [Concomitant]
     Active Substance: TAFLUPROST
  15. DORZOLAMIDE\TIMOLOL [Concomitant]
     Active Substance: DORZOLAMIDE\TIMOLOL
  16. ALPHAGAN P [Concomitant]
     Active Substance: BRIMONIDINE TARTRATE
  17. ALPHAGAN P [Concomitant]
     Active Substance: BRIMONIDINE TARTRATE
  18. ACETAMINOPHEN\HYDROCODONE [Concomitant]
     Active Substance: ACETAMINOPHEN\HYDROCODONE
  19. HYDROCHLOROTHIAZIDE [Concomitant]
     Active Substance: HYDROCHLOROTHIAZIDE
  20. HYDROCHLOROTHIAZIDE [Concomitant]
     Active Substance: HYDROCHLOROTHIAZIDE
  21. VALACYCLOVIR [Concomitant]
     Active Substance: VALACYCLOVIR HYDROCHLORIDE
  22. VALACYCLOVIR [Concomitant]
     Active Substance: VALACYCLOVIR HYDROCHLORIDE
  23. HYALURONIC ACID [Concomitant]
     Active Substance: HYALURONIC ACID
     Dosage: 30 MG/2 ML SYRINGE
  24. HYALURONIC ACID [Concomitant]
     Active Substance: HYALURONIC ACID
     Dosage: 30 MG/2 ML SYRINGE
  25. ONDANSETRON [Concomitant]
     Active Substance: ONDANSETRON
     Dosage: RAPID DISSOLVE TABLETS
  26. ONDANSETRON [Concomitant]
     Active Substance: ONDANSETRON
     Dosage: RAPID DISSOLVE TABLETS
  27. LIOTHYRONINE SODIUM [Concomitant]
     Active Substance: LIOTHYRONINE SODIUM
  28. LIOTHYRONINE SODIUM [Concomitant]
     Active Substance: LIOTHYRONINE SODIUM
  29. POTASSIUM CHLORIDE [Concomitant]
     Active Substance: POTASSIUM CHLORIDE
  30. POTASSIUM CHLORIDE [Concomitant]
     Active Substance: POTASSIUM CHLORIDE
  31. OFLOXACIN [Concomitant]
     Active Substance: OFLOXACIN
  32. OFLOXACIN [Concomitant]
     Active Substance: OFLOXACIN
  33. METHAZOLAMIDE [Concomitant]
     Active Substance: METHAZOLAMIDE
  34. METHAZOLAMIDE [Concomitant]
     Active Substance: METHAZOLAMIDE
  35. LEVOTHYROXINE SODIUM [Concomitant]
     Active Substance: LEVOTHYROXINE SODIUM
  36. LEVOTHYROXINE SODIUM [Concomitant]
     Active Substance: LEVOTHYROXINE SODIUM
  37. COSOPT [Concomitant]
     Active Substance: DORZOLAMIDE HYDROCHLORIDE\TIMOLOL MALEATE
     Dosage: 22.3-6.8/1.
  38. COSOPT [Concomitant]
     Active Substance: DORZOLAMIDE HYDROCHLORIDE\TIMOLOL MALEATE
     Dosage: 22.3-6.8/1.
  39. CASTOR OIL [Concomitant]
     Active Substance: CASTOR OIL
     Dosage: IN THE RIGHT EYE
  40. CASTOR OIL [Concomitant]
     Active Substance: CASTOR OIL
     Dosage: IN THE RIGHT EYE
  41. PREDNISOLONE-NEPAFENAC [Concomitant]
  42. VITAMIN C [Concomitant]
     Active Substance: ASCORBIC ACID
  43. VITAMIN C [Concomitant]
     Active Substance: ASCORBIC ACID
  44. SELENIUM [Concomitant]
     Active Substance: SELENIUM
  45. SELENIUM [Concomitant]
     Active Substance: SELENIUM
  46. FISH OIL [Concomitant]
     Active Substance: FISH OIL
     Dosage: 100-160 MG
  47. FISH OIL [Concomitant]
     Active Substance: FISH OIL
     Dosage: 100-160 MG
  48. MACA ROOT [Concomitant]
  49. TURMERIC-GINGER-BLACK PEPPER [Concomitant]
  50. NAC [Concomitant]
  51. NAC [Concomitant]
  52. DIGESTIVE ADVANTAGE ADVANCED [Concomitant]
  53. CINNAMON [Concomitant]
     Active Substance: CINNAMON
  54. CINNAMON [Concomitant]
     Active Substance: CINNAMON
  55. PROBIOTICS NOS [Concomitant]
     Active Substance: PROBIOTICS NOS
     Dosage: 10 BILLION CELL.
  56. PROBIOTICS NOS [Concomitant]
     Active Substance: PROBIOTICS NOS
     Dosage: 10 BILLION CELL.
  57. MENAQUINONE 6 [Concomitant]
     Active Substance: MENAQUINONE 6
  58. MENAQUINONE 6 [Concomitant]
     Active Substance: MENAQUINONE 6
  59. COQMAX-OMEGA [Concomitant]
     Dosage: 174 MG-50 MG
  60. COQMAX-OMEGA [Concomitant]
     Dosage: 174 MG-50 MG
  61. ARTIFICIAL TEARS [Concomitant]
  62. COSOPT PF [Concomitant]
     Active Substance: DORZOLAMIDE HYDROCHLORIDE\TIMOLOL MALEATE
     Dosage: 2 %-0.5 % DROPERETTE.
  63. COSOPT PF [Concomitant]
     Active Substance: DORZOLAMIDE HYDROCHLORIDE\TIMOLOL MALEATE
     Dosage: 2 %-0.5 % DROPERETTE.
  64. CLINDAMYCIN HYDROCHLORIDE [Concomitant]
     Active Substance: CLINDAMYCIN HYDROCHLORIDE
  65. FLUCONAZOLE [Concomitant]
     Active Substance: FLUCONAZOLE
  66. ALBUTEROL SULFATE [Concomitant]
     Active Substance: ALBUTEROL SULFATE
  67. PREDNISONE [Concomitant]
     Active Substance: PREDNISONE
  68. PRP PLASMA EYE DROPS [Concomitant]

REACTIONS (15)
  - Pneumonia [Not Recovered/Not Resolved]
  - Blood pressure increased [Not Recovered/Not Resolved]
  - Vision blurred [Recovered/Resolved]
  - Photophobia [Recovered/Resolved]
  - Insomnia [Not Recovered/Not Resolved]
  - Intraocular pressure increased [Recovering/Resolving]
  - Dry eye [Not Recovered/Not Resolved]
  - Headache [Recovering/Resolving]
  - Eye pain [Unknown]
  - Product preparation error [Unknown]
  - Eye oedema [Unknown]
  - Eye irritation [Unknown]
  - Oropharyngeal pain [Unknown]
  - Eye inflammation [Unknown]
  - Foreign body sensation in eyes [Unknown]

NARRATIVE: CASE EVENT DATE: 20230616
